FAERS Safety Report 19984123 (Version 2)
Quarter: 2021Q4

REPORT INFORMATION
  Report Type: Spontaneous
  Country: NL (occurrence: NL)
  Receive Date: 20211022
  Receipt Date: 20211111
  Transmission Date: 20220303
  Serious: Yes (Other)
  Sender: FDA-Public Use
  Company Number: None

PATIENT
  Age: 30 Year
  Sex: Female
  Weight: 50 kg

DRUGS (1)
  1. ETHINYL ESTRADIOL\LEVONORGESTREL [Suspect]
     Active Substance: ETHINYL ESTRADIOL\LEVONORGESTREL
     Dosage: 1 DOSAGE FORMS DAILY; STRENGTH : 20/100UG
     Route: 065
     Dates: start: 202105, end: 20210901

REACTIONS (4)
  - Abortion spontaneous [Unknown]
  - Heavy menstrual bleeding [Recovering/Resolving]
  - Maternal exposure before pregnancy [Unknown]
  - Menstruation irregular [Recovering/Resolving]

NARRATIVE: CASE EVENT DATE: 20210801
